FAERS Safety Report 16458169 (Version 1)
Quarter: 2019Q2

REPORT INFORMATION
  Report Type: Spontaneous
  Country: US (occurrence: US)
  Receive Date: 20190510
  Receipt Date: 20190510
  Transmission Date: 20190711
  Serious: Yes (Hospitalization)
  Sender: FDA-Public Use
  Company Number: None

PATIENT
  Age: 12 Year
  Sex: Male

DRUGS (12)
  1. AZITROMYCIN [Concomitant]
     Active Substance: AZITHROMYCIN ANHYDROUS
  2. FLOVENT HFA [Concomitant]
     Active Substance: FLUTICASONE PROPIONATE
  3. NOXAFIL [Concomitant]
     Active Substance: POSACONAZOLE
  4. PREDNISONE. [Concomitant]
     Active Substance: PREDNISONE
  5. ETHAMBUTOL [Concomitant]
     Active Substance: ETHAMBUTOL HYDROCHLORIDE
  6. SOD CHL 7% [Concomitant]
  7. PULMOZYME [Suspect]
     Active Substance: DORNASE ALFA
     Indication: CYSTIC FIBROSIS
     Route: 055
     Dates: start: 20131101
  8. AMIKACIN. [Concomitant]
     Active Substance: AMIKACIN
  9. CREON [Concomitant]
     Active Substance: PANCRELIPASE AMYLASE\PANCRELIPASE LIPASE\PANCRELIPASE PROTEASE
  10. FLUTICASONE NASAL [Concomitant]
     Active Substance: FLUTICASONE
  11. PROAIR HFA [Concomitant]
     Active Substance: ALBUTEROL SULFATE
  12. SMZ/TMP DS [Concomitant]
     Active Substance: SULFAMETHOXAZOLE\TRIMETHOPRIM

REACTIONS (1)
  - Hospitalisation [None]
